FAERS Safety Report 15993344 (Version 8)
Quarter: 2019Q3

REPORT INFORMATION
  Report Type: Spontaneous
  Country: US (occurrence: US)
  Receive Date: 20190222
  Receipt Date: 20190926
  Transmission Date: 20191004
  Serious: Yes (Congenital Anomaly, Other)
  Sender: FDA-Public Use
  Company Number: PHEH2019US007774

PATIENT
  Sex: Female

DRUGS (3)
  1. ZOFRAN [Suspect]
     Active Substance: ONDANSETRON HYDROCHLORIDE
     Indication: FOETAL EXPOSURE DURING PREGNANCY
     Dosage: MOTHER DOSE: 04 MG, Q8H
     Route: 064
  2. ZOFRAN ODT [Suspect]
     Active Substance: ONDANSETRON HYDROCHLORIDE
     Indication: FOETAL EXPOSURE DURING PREGNANCY
     Dosage: MOTHER DOSE: UNK
     Route: 064
  3. ONDANSETRON [Suspect]
     Active Substance: ONDANSETRON
     Indication: FOETAL EXPOSURE DURING PREGNANCY
     Dosage: MOTHER DOSE: 4 MG, Q6H
     Route: 064

REACTIONS (13)
  - Cleft lip and palate [Unknown]
  - Pyrexia [Unknown]
  - Ear infection [Unknown]
  - Speech disorder [Unknown]
  - Nasal congestion [Unknown]
  - Diarrhoea [Unknown]
  - Cough [Unknown]
  - Nose deformity [Unknown]
  - Oral pain [Unknown]
  - Foetal exposure during pregnancy [Unknown]
  - Failure to thrive [Unknown]
  - Rhinorrhoea [Unknown]
  - Eustachian tube dysfunction [Unknown]
